FAERS Safety Report 6531957-0 (Version None)
Quarter: 2010Q1

REPORT INFORMATION
  Report Type: 
  Country: None (occurrence: None)
  Receive Date: 20100107
  Receipt Date: 20100107
  Transmission Date: 20100710
  Serious: Yes (Other)
  Sender: FDA-Public Use
  Company Number: None

PATIENT
  Age: 2 Month
  Sex: Female
  Weight: 6.1236 kg

DRUGS (1)
  1. WARFARIN SODIUM [Suspect]
     Indication: THROMBOSIS
     Dosage: 7.5 MG 5 DAYS/WEEK PO 10 MG 2 DAYS/ WEEK PO
     Route: 048
     Dates: start: 20090414, end: 20091218

REACTIONS (6)
  - BRAIN OEDEMA [None]
  - CONTUSION [None]
  - DRUG EXPOSURE VIA BREAST MILK [None]
  - FRUSTRATION [None]
  - PAIN [None]
  - PRODUCT LABEL ISSUE [None]
